FAERS Safety Report 15997241 (Version 2)
Quarter: 2019Q1

REPORT INFORMATION
  Report Type: Spontaneous
  Country: CA (occurrence: CA)
  Receive Date: 20190222
  Receipt Date: 20190301
  Transmission Date: 20190418
  Serious: Yes (Other)
  Sender: FDA-Public Use
  Company Number: CA-REGENERON PHARMACEUTICALS, INC.-2019-18871

PATIENT

DRUGS (4)
  1. EYLEA [Suspect]
     Active Substance: AFLIBERCEPT
     Dosage: RIGHT EYE
     Dates: start: 20170328, end: 20170328
  2. ATIVAN [Concomitant]
     Active Substance: LORAZEPAM
     Indication: PRODUCT USED FOR UNKNOWN INDICATION
     Dosage: SOME TIME BEFORE INJECTION
  3. ATIVAN [Concomitant]
     Active Substance: LORAZEPAM
     Dosage: SOME TIME BEFORE INJECTION
  4. EYLEA [Suspect]
     Active Substance: AFLIBERCEPT
     Indication: MACULAR DEGENERATION
     Dosage: REGULAR INJECTIONS

REACTIONS (2)
  - Ocular procedural complication [Unknown]
  - Visual impairment [Unknown]

NARRATIVE: CASE EVENT DATE: 20170329
